FAERS Safety Report 4958328-2 (Version None)
Quarter: 2006Q1

REPORT INFORMATION
  Report Type: 
  Country: None (occurrence: None)
  Receive Date: 20060329
  Receipt Date: 20060329
  Transmission Date: 20060701
  Serious: Yes (Hospitalization)
  Sender: FDA-Public Use
  Company Number: None

PATIENT
  Age: 52 Year
  Sex: Male
  Weight: 85.2 kg

DRUGS (6)
  1. QUETIAPINE FUMARATE [Suspect]
     Indication: SCHIZOPHRENIA
     Dosage: 100 MG BID PO
     Route: 048
  2. EFFEXOR [Concomitant]
  3. ASPIRIN [Concomitant]
  4. BENZTROPINE MESYLATE [Concomitant]
  5. LISINOPRIL [Concomitant]
  6. CLONAZEPAM [Concomitant]

REACTIONS (3)
  - ABASIA [None]
  - COORDINATION ABNORMAL [None]
  - TREMOR [None]
